FAERS Safety Report 19969836 (Version 1)
Quarter: 2021Q4

REPORT INFORMATION
  Report Type: Report from Study
  Country: NL (occurrence: NL)
  Receive Date: 20211019
  Receipt Date: 20211019
  Transmission Date: 20220303
  Serious: Yes (Death, Hospitalization)
  Sender: FDA-Public Use
  Company Number: None

PATIENT
  Age: 71 Year
  Sex: Male

DRUGS (6)
  1. AZACITIDINE [Suspect]
     Active Substance: AZACITIDINE
     Indication: Acute myeloid leukaemia
     Dosage: 75 MILLIGRAM/SQ. METER
     Route: 065
     Dates: start: 20210119, end: 20210126
  2. DACOGEN [Suspect]
     Active Substance: DECITABINE
     Indication: Acute myeloid leukaemia
     Dosage: 20 MILLIGRAM/SQ. METER
     Route: 048
     Dates: start: 20210119, end: 202101
  3. VENETOCLAX [Suspect]
     Active Substance: VENETOCLAX
     Indication: Acute myeloid leukaemia
     Dosage: 400 MILLIGRAM, QD
     Route: 048
     Dates: start: 2021, end: 2021
  4. VENETOCLAX [Suspect]
     Active Substance: VENETOCLAX
     Dosage: 100 MILLIGRAM, QD
     Route: 048
     Dates: start: 20210119, end: 20210120
  5. VENETOCLAX [Suspect]
     Active Substance: VENETOCLAX
     Dosage: 300 MILLIGRAM, QD
     Route: 048
     Dates: start: 2021, end: 2021
  6. VENETOCLAX [Suspect]
     Active Substance: VENETOCLAX
     Dosage: 200 MILLIGRAM, QD
     Route: 048
     Dates: start: 2021, end: 2021

REACTIONS (6)
  - Acute myeloid leukaemia [Fatal]
  - Therapeutic product effect incomplete [Fatal]
  - Infection [Fatal]
  - Off label use [Unknown]
  - Neutropenia [Not Recovered/Not Resolved]
  - Oesophageal candidiasis [Recovered/Resolved]

NARRATIVE: CASE EVENT DATE: 20210101
